FAERS Safety Report 19491226 (Version 1)
Quarter: 2021Q3

REPORT INFORMATION
  Report Type: Other
  Country: CN (occurrence: CN)
  Receive Date: 20210705
  Receipt Date: 20210705
  Transmission Date: 20211014
  Serious: Yes (Hospitalization, Disabling)
  Sender: FDA-Public Use
  Company Number: CN-DEXPHARM-20210925

PATIENT
  Age: 66 Year
  Sex: Male

DRUGS (9)
  1. VENLAFAXINE XR [Interacting]
     Active Substance: VENLAFAXINE HYDROCHLORIDE
     Indication: MAJOR DEPRESSION
     Dosage: VENLAFAXINE XR (300 MG/DAY)
  2. VENLAFAXINE XR [Interacting]
     Active Substance: VENLAFAXINE HYDROCHLORIDE
     Indication: MAJOR DEPRESSION
     Dosage: VENLAFAXINE XR (150 MG/DAY)
  3. SCOPOLAMINE [Interacting]
     Active Substance: SCOPOLAMINE
     Indication: MAJOR DEPRESSION
     Dosage: AN INFUSION OF SCOPOLAMINE (0.3 MG FOUR TIMES A DAY).
  4. DEANXIT [Interacting]
     Active Substance: FLUPENTIXOL DIHYDROCHLORIDE\MELITRACEN HYDROCHLORIDE
     Indication: MAJOR DEPRESSION
     Dosage: FLUPENTIXOL?MELITRACEN (DEANXIT+#174;; ONE TAB/DAY),
  5. DULOXETINE. [Interacting]
     Active Substance: DULOXETINE
     Indication: MAJOR DEPRESSION
     Dosage: DULOXETINE (180 MG/DAY)
  6. SULPIRIDE [Interacting]
     Active Substance: SULPIRIDE
     Indication: MAJOR DEPRESSION
     Dosage: SULPIRIDE (0.1/D)
  7. MIRTAZAPINE. [Interacting]
     Active Substance: MIRTAZAPINE
     Indication: MAJOR DEPRESSION
     Dosage: MIRTAZAPINE (15 MG/DAY
  8. VENLAFAXINE XR [Suspect]
     Active Substance: VENLAFAXINE HYDROCHLORIDE
     Indication: MAJOR DEPRESSION
     Dosage: VENLAFAXINE XR (225 MG/DAY)
  9. LORAZEPAM. [Interacting]
     Active Substance: LORAZEPAM
     Indication: MAJOR DEPRESSION
     Dosage: LORAZEPAM (1 MG/DAY)

REACTIONS (4)
  - Off label use [Recovered/Resolved]
  - Drug interaction [Recovered/Resolved]
  - Headache [Recovered/Resolved]
  - Fatigue [Recovered/Resolved]
